FAERS Safety Report 8973215 (Version 3)
Quarter: 2013Q1

REPORT INFORMATION
  Report Type: Spontaneous
  Country: US (occurrence: US)
  Receive Date: 20121218
  Receipt Date: 20130109
  Transmission Date: 20140127
  Serious: Yes (Other)
  Sender: FDA-Public Use
  Company Number: US-PFIZER INC-2012318263

PATIENT
  Sex: Female

DRUGS (4)
  1. LIPITOR [Suspect]
     Dosage: UNK
  2. CELEBREX [Suspect]
     Dosage: UNK
  3. CALAN SR [Suspect]
     Dosage: UNK
  4. NEURONTIN [Concomitant]
     Dosage: 600 MG, UNK

REACTIONS (2)
  - Surgery [Unknown]
  - Pain [Unknown]
